FAERS Safety Report 9507771 (Version 1)
Quarter: 2013Q3

REPORT INFORMATION
  Report Type: Spontaneous
  Country: GB (occurrence: None)
  Receive Date: 20130905
  Receipt Date: 20130905
  Transmission Date: 20140515
  Serious: Yes (Other)
  Sender: FDA-Public Use
  Company Number: CL-516-2013

PATIENT
  Age: 66 Year
  Sex: Female

DRUGS (5)
  1. METRONIDAZOLE [Suspect]
     Indication: CLOSTRIDIUM DIFFICILE INFECTION
  2. ASPIRIN [Concomitant]
  3. ANTIHYPERTENSIVES [Concomitant]
  4. SIMVASTATIN [Concomitant]
  5. ALBUTEROL AND IPRATROPIUM NEBULIZERS [Concomitant]

REACTIONS (5)
  - Leukoencephalopathy [None]
  - Parkinsonism [None]
  - Neurotoxicity [None]
  - Ataxia [None]
  - Dysarthria [None]
